FAERS Safety Report 5568256-X (Version None)
Quarter: 2007Q4

REPORT INFORMATION
  Report Type: 
  Country: None (occurrence: None)
  Receive Date: 20071220
  Receipt Date: 20071211
  Transmission Date: 20080405
  Serious: Yes (Death)
  Sender: FDA-Public Use
  Company Number: GB-BRACCO-BRO-012408

PATIENT
  Sex: Male

DRUGS (2)
  1. MULTIHANCE [Suspect]
     Indication: NUCLEAR MAGNETIC RESONANCE IMAGING
     Route: 065
  2. OMNIPAQUE 300 [Suspect]
     Indication: ANGIOGRAM
     Route: 065

REACTIONS (2)
  - INTERVERTEBRAL DISCITIS [None]
  - RENAL FAILURE ACUTE [None]
